FAERS Safety Report 6979321-4 (Version None)
Quarter: 2010Q3

REPORT INFORMATION
  Report Type: 
  Country: None (occurrence: None)
  Receive Date: 20100913
  Receipt Date: 20100902
  Transmission Date: 20110219
  Serious: Yes (Hospitalization)
  Sender: FDA-Public Use
  Company Number: CN-BAXTER-2010BH022205

PATIENT
  Age: 40 Year
  Sex: Male

DRUGS (2)
  1. DIANEAL [Suspect]
     Indication: GLOMERULONEPHRITIS CHRONIC
     Route: 033
     Dates: start: 20100301, end: 20100813
  2. DIANEAL [Suspect]
     Route: 033
     Dates: start: 20100813

REACTIONS (5)
  - ABDOMINAL PAIN UPPER [None]
  - CHEST DISCOMFORT [None]
  - PERITONITIS BACTERIAL [None]
  - PRODUCT CONTAMINATION PHYSICAL [None]
  - TACHYPNOEA [None]
